FAERS Safety Report 22080573 (Version 2)
Quarter: 2023Q1

REPORT INFORMATION
  Report Type: Report from Study
  Country: BE (occurrence: BE)
  Receive Date: 20230309
  Receipt Date: 20230323
  Transmission Date: 20230418
  Serious: No
  Sender: FDA-Public Use
  Company Number: BE-GILEAD-2023-0619404

PATIENT
  Age: 73 Year
  Sex: Male
  Weight: 83 kg

DRUGS (5)
  1. AVELUMAB [Suspect]
     Active Substance: AVELUMAB
     Indication: Transitional cell carcinoma metastatic
     Dosage: 800 MG, Q2WK
     Route: 042
     Dates: start: 20221201
  2. AVIPENDEKIN PEGOL [Suspect]
     Active Substance: AVIPENDEKIN PEGOL
     Indication: Transitional cell carcinoma metastatic
     Dosage: 243 UG, Q4WK
     Route: 042
     Dates: start: 20221201
  3. LEVOCETIRIZINE HYDROCHLORIDE [Concomitant]
     Active Substance: LEVOCETIRIZINE HYDROCHLORIDE
     Dosage: 5 MG PREMEDICATION
     Route: 048
  4. ACETAMINOPHEN [Concomitant]
     Active Substance: ACETAMINOPHEN
     Dosage: 1 G PREMEDICATION
     Route: 048
     Dates: start: 20221201, end: 20221201
  5. ACETAMINOPHEN [Concomitant]
     Active Substance: ACETAMINOPHEN
     Dosage: 1 G PREMEDICATION
     Route: 048
     Dates: start: 20221201, end: 20221201

REACTIONS (1)
  - Infusion related reaction [Recovered/Resolved]

NARRATIVE: CASE EVENT DATE: 20221201
